FAERS Safety Report 7960413-8 (Version None)
Quarter: 2011Q4

REPORT INFORMATION
  Report Type: 
  Country: None (occurrence: None)
  Receive Date: 20111201
  Receipt Date: 20111117
  Transmission Date: 20120403
  Serious: Yes (Hospitalization, Disabling, Other)
  Sender: FDA-Public Use
  Company Number: 2011MA003790

PATIENT
  Sex: Male
  Weight: 117.9352 kg

DRUGS (34)
  1. ATUSS [Concomitant]
  2. FIORICET [Concomitant]
  3. HYDROCODONE [Concomitant]
  4. ULTRACET [Concomitant]
  5. ULTRAM [Concomitant]
  6. CIPROFLOXACIN [Concomitant]
  7. PLAVIX [Concomitant]
  8. PROAIR HFA [Concomitant]
  9. WELLBUTRIN [Concomitant]
  10. ATROVENT [Concomitant]
  11. AZITHROMYCIN [Concomitant]
  12. HYDROCHLOROTHIAZIDE [Concomitant]
  13. ACETAMINOPHEN [Concomitant]
  14. PREVACID [Concomitant]
  15. PROTONIX [Concomitant]
  16. SINGULAIR [Concomitant]
  17. ZYPREXA [Concomitant]
  18. LEVAQUIN [Concomitant]
  19. LIPITOR [Concomitant]
  20. NITROGLYCERIN [Concomitant]
  21. ADVAIR DISKUS 100/50 [Concomitant]
  22. CYCLOBENZAPRINE [Concomitant]
  23. NAPROSYN [Concomitant]
  24. PROZAC [Concomitant]
  25. IMDUR [Concomitant]
  26. METFORMIN HCL [Concomitant]
  27. TENORMIN [Concomitant]
  28. GLYBURIDE [Concomitant]
  29. SYMBICORT [Concomitant]
  30. ZANAFLEX [Concomitant]
  31. METOCLOPRAMIDE [Suspect]
     Indication: GASTROOESOPHAGEAL REFLUX DISEASE
     Dosage: 10 MG;BID;PO
     Route: 048
     Dates: start: 20010913, end: 20101222
  32. CRESTOR [Concomitant]
  33. MECLIZINE [Concomitant]
  34. NEXIUM [Concomitant]

REACTIONS (20)
  - CORONARY ARTERY DISEASE [None]
  - HYPERLIPIDAEMIA [None]
  - EXTRAPYRAMIDAL DISORDER [None]
  - CHOREA [None]
  - EMOTIONAL DISORDER [None]
  - HYPERCHOLESTEROLAEMIA [None]
  - DEAFNESS [None]
  - ARTHRITIS [None]
  - FAMILY STRESS [None]
  - PAIN IN EXTREMITY [None]
  - CHRONIC OBSTRUCTIVE PULMONARY DISEASE [None]
  - EMPHYSEMA [None]
  - DIABETES MELLITUS [None]
  - HYPERTENSION [None]
  - TARDIVE DYSKINESIA [None]
  - DYSKINESIA [None]
  - RESTLESS LEGS SYNDROME [None]
  - ECONOMIC PROBLEM [None]
  - BACK PAIN [None]
  - BRONCHITIS CHRONIC [None]
